FAERS Safety Report 15343617 (Version 3)
Quarter: 2018Q4

REPORT INFORMATION
  Report Type: Spontaneous
  Country: US (occurrence: US)
  Receive Date: 20180903
  Receipt Date: 20181001
  Transmission Date: 20190204
  Serious: No
  Sender: FDA-Public Use
  Company Number: US-PFIZER INC-2018347686

PATIENT
  Age: 76 Year
  Sex: Male

DRUGS (1)
  1. XELJANZ XR [Suspect]
     Active Substance: TOFACITINIB CITRATE
     Indication: RHEUMATOID ARTHRITIS
     Dosage: 11 MG, UNK
     Route: 048
     Dates: start: 201808, end: 20180919

REACTIONS (8)
  - Drug ineffective [Unknown]
  - Sleep talking [Unknown]
  - Dyspnoea [Unknown]
  - Cough [Unknown]
  - Dizziness [Unknown]
  - Respiratory tract congestion [Unknown]
  - Condition aggravated [Unknown]
  - Productive cough [Unknown]

NARRATIVE: CASE EVENT DATE: 20180921
